FAERS Safety Report 19980943 (Version 1)
Quarter: 2021Q4

REPORT INFORMATION
  Report Type: Spontaneous
  Country: US (occurrence: US)
  Receive Date: 20211021
  Receipt Date: 20211021
  Transmission Date: 20220303
  Serious: No
  Sender: FDA-Public Use
  Company Number: US-TAKEDA-2021TUS064398

PATIENT
  Sex: Female

DRUGS (24)
  1. ACTOS [Suspect]
     Active Substance: PIOGLITAZONE HYDROCHLORIDE
     Indication: Product used for unknown indication
     Dosage: UNK
     Route: 065
     Dates: start: 2017
  2. GLIPIZIDE [Concomitant]
     Active Substance: GLIPIZIDE
  3. LISINOPRIL [Concomitant]
     Active Substance: LISINOPRIL
  4. VERAPAMIL [Concomitant]
     Active Substance: VERAPAMIL HYDROCHLORIDE
  5. ADVIL [Concomitant]
     Active Substance: IBUPROFEN
  6. COLACE [Concomitant]
     Active Substance: DOCUSATE SODIUM
  7. PROBIOTICS NOS [Concomitant]
     Active Substance: PROBIOTICS NOS
  8. HERBALS\TURMERIC [Concomitant]
     Active Substance: HERBALS\TURMERIC
  9. DIETARY SUPPLEMENT\HERBALS\MILK THISTLE [Concomitant]
     Active Substance: DIETARY SUPPLEMENT\HERBALS\MILK THISTLE
  10. VITAMIN B COMPLEX [Concomitant]
     Active Substance: CYANOCOBALAMIN\DEXPANTHENOL\NIACINAMIDE\PYRIDOXINE HYDROCHLORIDE\RIBOFLAVIN 5^-PHOSPHATE SODIUM\THIA
  11. VITAMIN C [Concomitant]
     Active Substance: ASCORBIC ACID
  12. VITAMIN D3 [Concomitant]
     Active Substance: CHOLECALCIFEROL
  13. VITAMIN E [Concomitant]
     Active Substance: .ALPHA.-TOCOPHEROL
  14. FLAXSEED [Concomitant]
     Active Substance: FLAX SEED
  15. MAGNESIUM [Concomitant]
     Active Substance: MAGNESIUM
  16. HERBALS [Concomitant]
     Active Substance: HERBALS
  17. CHONDROITIN SULFATE (BOVINE)\GLUCOSAMINE HYDROCHLORIDE [Concomitant]
     Active Substance: CHONDROITIN SULFATE (BOVINE)\GLUCOSAMINE HYDROCHLORIDE
  18. DIMETHYL SULFONE [Concomitant]
     Active Substance: DIMETHYL SULFONE
  19. DIETARY SUPPLEMENT\RESVERATROL [Concomitant]
     Active Substance: DIETARY SUPPLEMENT\RESVERATROL
  20. CINNAMON [Concomitant]
     Active Substance: CINNAMON
  21. ALBUTEROL [Concomitant]
     Active Substance: ALBUTEROL
  22. ALLEGRA [Concomitant]
     Active Substance: FEXOFENADINE HYDROCHLORIDE
  23. TESSALON [Concomitant]
     Active Substance: BENZONATATE
  24. DIETARY SUPPLEMENT\GRAPE SEED EXTRACT [Concomitant]
     Active Substance: DIETARY SUPPLEMENT\GRAPE SEED EXTRACT

REACTIONS (2)
  - Weight increased [Unknown]
  - Urinary tract infection [Unknown]
